FAERS Safety Report 17003338 (Version 1)
Quarter: 2019Q4

REPORT INFORMATION
  Report Type: Spontaneous
  Country: US (occurrence: US)
  Receive Date: 20191107
  Receipt Date: 20191107
  Transmission Date: 20200122
  Serious: No
  Sender: FDA-Public Use
  Company Number: US-ALLERGAN-1937254US

PATIENT
  Age: 74 Year
  Sex: Female

DRUGS (3)
  1. ALPHAGAN P [Suspect]
     Active Substance: BRIMONIDINE TARTRATE
     Dosage: UNK
     Route: 031
  2. ALPHAGAN P [Suspect]
     Active Substance: BRIMONIDINE TARTRATE
     Indication: GLAUCOMA
     Dosage: 2 GTT, BID
     Route: 031
     Dates: start: 201905
  3. UNSPECIFIED EYE DROPS [Concomitant]
     Active Substance: UNSPECIFIED INGREDIENT
     Indication: HYPERSENSITIVITY
     Dosage: UNK
     Route: 047

REACTIONS (6)
  - Toothache [Unknown]
  - Ear pain [Unknown]
  - Hypersensitivity [Unknown]
  - External ear inflammation [Unknown]
  - Facial pain [Unknown]
  - Eye pain [Unknown]

NARRATIVE: CASE EVENT DATE: 201909
